FAERS Safety Report 6400389-8 (Version None)
Quarter: 2009Q4

REPORT INFORMATION
  Report Type: 
  Country: None (occurrence: None)
  Receive Date: 20091014
  Receipt Date: 20091002
  Transmission Date: 20100525
  Serious: Yes (Hospitalization)
  Sender: FDA-Public Use
  Company Number: PR-ELI_LILLY_AND_COMPANY-US200910001227

PATIENT
  Sex: Male
  Weight: 69 kg

DRUGS (1)
  1. OLANZAPINE + FLUOXETINE HCL [Suspect]
     Indication: MAJOR DEPRESSION
     Dosage: UNK, UNK
     Dates: start: 20090910, end: 20091001

REACTIONS (1)
  - AGITATION [None]
